FAERS Safety Report 9994759 (Version 1)
Quarter: 2014Q1

REPORT INFORMATION
  Report Type: Spontaneous
  Country: IT (occurrence: IT)
  Receive Date: 20140311
  Receipt Date: 20140311
  Transmission Date: 20141002
  Serious: Yes (Other)
  Sender: FDA-Public Use
  Company Number: IT-SUN PHARMACEUTICAL INDUSTRIES LTD-2014SUN00524

PATIENT
  Age: 54 Year
  Sex: Female

DRUGS (2)
  1. OXALIPLATINO SUN 5 MG/ML, CONCENTRATO PER SOLUZIONE PER INFUSIONE [Suspect]
     Indication: COLON CANCER
     Dosage: 130 MG/M2, DAY 1 IN 3-WEEKLY CYCLE
     Route: 065
  2. CAPECITABINE [Suspect]
     Indication: COLON CANCER
     Dosage: 2000 MG/M2, DAY 1 TO DAY 14, 3 WEEKLY CYCLES
     Route: 065

REACTIONS (4)
  - Eyelid ptosis [Recovered/Resolved]
  - Dyspnoea [Recovered/Resolved]
  - Constipation [Unknown]
  - Paraesthesia [Unknown]
